FAERS Safety Report 13697055 (Version 1)
Quarter: 2017Q2

REPORT INFORMATION
  Report Type: Spontaneous
  Country: JP (occurrence: JP)
  Receive Date: 20170628
  Receipt Date: 20170628
  Transmission Date: 20170830
  Serious: Yes (Death)
  Sender: FDA-Public Use
  Company Number: JP-ASTRAZENECA-2017SE56601

PATIENT
  Age: 61 Year
  Sex: Female
  Weight: 29 kg

DRUGS (1)
  1. IRESSA [Suspect]
     Active Substance: GEFITINIB
     Indication: LUNG ADENOCARCINOMA
     Route: 048
     Dates: start: 20160324, end: 20170126

REACTIONS (4)
  - Decreased appetite [Unknown]
  - Gastroenteritis Escherichia coli [Fatal]
  - General physical health deterioration [Unknown]
  - Stomatitis [Unknown]
